FAERS Safety Report 18368455 (Version 1)
Quarter: 2020Q4

REPORT INFORMATION
  Report Type: Spontaneous
  Country: BR (occurrence: BR)
  Receive Date: 20201009
  Receipt Date: 20201009
  Transmission Date: 20210114
  Serious: Yes (Hospitalization, Other)
  Sender: FDA-Public Use
  Company Number: BR-B.I. PHARMACEUTICALS,INC./RIDGEFIELD-2020-BI-052515

PATIENT
  Age: 63 Year
  Sex: Female
  Weight: 45 kg

DRUGS (2)
  1. OFEV [Suspect]
     Active Substance: NINTEDANIB
     Indication: IDIOPATHIC PULMONARY FIBROSIS
     Route: 048
     Dates: start: 201811
  2. LOSARTANA POTASSICA [Concomitant]
     Active Substance: LOSARTAN
     Indication: HYPERTENSION
     Dosage: ONCE DAILY, ONGOING
     Route: 048
     Dates: start: 2002

REACTIONS (5)
  - Infarction [Recovered/Resolved]
  - Pulmonary oedema [Recovered/Resolved]
  - Infarction [Recovered/Resolved]
  - Idiopathic pulmonary fibrosis [Unknown]
  - Gait inability [Unknown]

NARRATIVE: CASE EVENT DATE: 20200527
